FAERS Safety Report 25629109 (Version 2)
Quarter: 2025Q4

REPORT INFORMATION
  Report Type: Spontaneous
  Country: US (occurrence: US)
  Receive Date: 20250731
  Receipt Date: 20251221
  Transmission Date: 20260117
  Serious: No
  Sender: SANOFI AVENTIS
  Company Number: US-SA-2025SA221651

PATIENT
  Sex: Female
  Weight: 60.91 kg

DRUGS (3)
  1. DUPIXENT [Suspect]
     Active Substance: DUPILUMAB
     Indication: Dermatitis atopic
     Dosage: 300 MG, QOW
     Route: 058
  2. FISH OIL [Concomitant]
     Active Substance: FISH OIL
  3. COENZYME Q10 [Concomitant]
     Active Substance: DIETARY SUPPLEMENT\UBIDECARENONE

REACTIONS (8)
  - Rebound atopic dermatitis [Unknown]
  - Product dose omission issue [Unknown]
  - Anxiety [Unknown]
  - Pain [Unknown]
  - Burning sensation [Unknown]
  - Cough [Recovered/Resolved]
  - Pruritus [Not Recovered/Not Resolved]
  - Inappropriate schedule of product administration [Unknown]
